FAERS Safety Report 7691301-2 (Version None)
Quarter: 2011Q3

REPORT INFORMATION
  Report Type: 
  Country: None (occurrence: None)
  Receive Date: 20110818
  Receipt Date: 20110811
  Transmission Date: 20111222
  Serious: Yes (Other)
  Sender: FDA-Public Use
  Company Number: US-ASTRAZENECA-2011SE45903

PATIENT
  Age: 79 Year
  Sex: Male
  Weight: 64 kg

DRUGS (11)
  1. BUPIVACAINE HCL [Suspect]
     Indication: SURGERY
     Route: 037
  2. ROPIVACAINE HYDROCHLORIDE [Suspect]
     Dosage: AT A RATE OF 4 ML/HR
     Route: 008
  3. ROPIVACAINE HYDROCHLORIDE [Suspect]
     Dosage: PATIENT CONTROLLED APIDURAL ANALGESIA
     Route: 008
  4. ROPIVACAINE HYDROCHLORIDE [Suspect]
     Indication: EPIDURAL ANAESTHESIA
     Route: 008
  5. ROPIVACAINE HYDROCHLORIDE [Suspect]
     Route: 008
  6. ROPIVACAINE HYDROCHLORIDE [Suspect]
     Route: 008
  7. ROPIVACAINE HYDROCHLORIDE [Suspect]
     Dosage: PATIENT CONTROLLED APIDURAL ANALGESIA
     Route: 008
  8. BUPIVACAINE HCL [Suspect]
     Indication: SPINAL ANAESTHESIA
     Route: 037
  9. ROPIVACAINE HYDROCHLORIDE [Suspect]
     Dosage: AT A RATE OF 4 ML/HR
     Route: 008
  10. ROPIVACAINE HYDROCHLORIDE [Suspect]
     Indication: POSTOPERATIVE ANALGESIA
     Route: 008
  11. LIDOCAINE [Concomitant]

REACTIONS (1)
  - CAUDA EQUINA SYNDROME [None]
